FAERS Safety Report 15313353 (Version 2)
Quarter: 2018Q4

REPORT INFORMATION
  Report Type: Report from Study
  Country: None (occurrence: US)
  Receive Date: 20180823
  Receipt Date: 20181210
  Transmission Date: 20190204
  Serious: Yes (Other)
  Sender: FDA-Public Use
  Company Number: US-ABBVIE-18K-163-2314536-00

PATIENT
  Sex: Male

DRUGS (1)
  1. HUMIRA [Suspect]
     Active Substance: ADALIMUMAB
     Indication: CROHN^S DISEASE
     Route: 058

REACTIONS (12)
  - Chronic kidney disease [Not Recovered/Not Resolved]
  - Fluid retention [Unknown]
  - General physical health deterioration [Unknown]
  - Hypertension [Unknown]
  - Intestinal operation [Recovered/Resolved]
  - IgA nephropathy [Unknown]
  - Neck surgery [Recovered/Resolved]
  - Squamous cell carcinoma [Recovering/Resolving]
  - Hypertension [Recovering/Resolving]
  - Peripheral swelling [Unknown]
  - Crohn^s disease [Recovered/Resolved]
  - Dyspnoea [Unknown]

NARRATIVE: CASE EVENT DATE: 2017
